FAERS Safety Report 6955545-7 (Version None)
Quarter: 2010Q3

REPORT INFORMATION
  Report Type: 
  Country: None (occurrence: None)
  Receive Date: 20100826
  Receipt Date: 20100826
  Transmission Date: 20110219
  Serious: No
  Sender: FDA-Public Use
  Company Number: None

PATIENT
  Age: 65 Year
  Sex: Male
  Weight: 74.8435 kg

DRUGS (1)
  1. CHANTIX [Suspect]

REACTIONS (4)
  - DERMATITIS ALLERGIC [None]
  - MERALGIA PARAESTHETICA [None]
  - NEUROPATHY PERIPHERAL [None]
  - WEIGHT DECREASED [None]
